FAERS Safety Report 14797366 (Version 6)
Quarter: 2018Q3

REPORT INFORMATION
  Report Type: Spontaneous
  Country: US (occurrence: US)
  Receive Date: 20180424
  Receipt Date: 20180911
  Transmission Date: 20181010
  Serious: Yes (Hospitalization, Other)
  Sender: FDA-Public Use
  Company Number: US-CELGENEUS-USA-20180403703

PATIENT
  Age: 57 Year
  Sex: Female
  Weight: 98 kg

DRUGS (3)
  1. OTEZLA [Suspect]
     Active Substance: APREMILAST
     Indication: PSORIATIC ARTHROPATHY
     Dosage: 60 MILLIGRAM
     Route: 048
     Dates: start: 20150715, end: 20160616
  2. CELEBREX [Concomitant]
     Active Substance: CELECOXIB
     Indication: PSORIATIC ARTHROPATHY
     Route: 065
  3. TYLENOL [Concomitant]
     Active Substance: ACETAMINOPHEN
     Indication: PRODUCT USED FOR UNKNOWN INDICATION
     Route: 065

REACTIONS (10)
  - Alopecia [Unknown]
  - Trigeminal neuralgia [Not Recovered/Not Resolved]
  - Ageusia [Recovering/Resolving]
  - Glossopharyngeal neuralgia [Not Recovered/Not Resolved]
  - Weight decreased [Unknown]
  - Sinusitis [Not Recovered/Not Resolved]
  - Dysphagia [Recovered/Resolved with Sequelae]
  - Deafness unilateral [Recovered/Resolved with Sequelae]
  - Brain neoplasm [Recovered/Resolved with Sequelae]
  - Aphonia [Recovered/Resolved with Sequelae]

NARRATIVE: CASE EVENT DATE: 201702
